FAERS Safety Report 9639247 (Version 3)
Quarter: 2013Q4

REPORT INFORMATION
  Report Type: Spontaneous
  Country: US (occurrence: None)
  Receive Date: 20131010
  Receipt Date: 20131211
  Transmission Date: 20140711
  Serious: Yes (Hospitalization, Other)
  Sender: FDA-Public Use
  Company Number: US-145481

PATIENT
  Age: 28 Year
  Sex: Female
  Weight: 94.1 kg

DRUGS (2)
  1. WINRHO SDF [Suspect]
     Indication: IMMUNE THROMBOCYTOPENIC PURPURA
     Route: 042
     Dates: start: 20130801, end: 20130801
  2. DEPO-PROVERA [Concomitant]

REACTIONS (8)
  - Haemolysis [None]
  - Haemolytic anaemia [None]
  - Hypotension [None]
  - Blood lactate dehydrogenase increased [None]
  - Blood bilirubin increased [None]
  - Fibrin D dimer increased [None]
  - Prothrombin time prolonged [None]
  - Coagulopathy [None]
